FAERS Safety Report 17861084 (Version 2)
Quarter: 2020Q3

REPORT INFORMATION
  Report Type: Spontaneous
  Country: FR (occurrence: FR)
  Receive Date: 20200604
  Receipt Date: 20200814
  Transmission Date: 20201103
  Serious: Yes (Other)
  Sender: FDA-Public Use
  Company Number: FR-JNJFOC-20200601132

PATIENT
  Age: 70 Year
  Sex: Female

DRUGS (3)
  1. RIVAROXABAN [Suspect]
     Active Substance: RIVAROXABAN
     Indication: THROMBOPHLEBITIS SUPERFICIAL
     Dosage: 10 MG, QD
     Route: 048
     Dates: start: 201801, end: 202005
  2. APROVEL [Concomitant]
     Active Substance: IRBESARTAN
     Indication: HYPERTENSION
     Dosage: 150 UNK
  3. RIVAROXABAN [Suspect]
     Active Substance: RIVAROXABAN
     Indication: FACTOR V LEIDEN MUTATION
     Dosage: 10 MG, QD
     Route: 048
     Dates: start: 20200605

REACTIONS (9)
  - Thrombosis [Unknown]
  - Blood urine present [Recovered/Resolved]
  - Asthenia [Recovered/Resolved]
  - Ear haemorrhage [Unknown]
  - Off label use [Unknown]
  - Dizziness [Recovered/Resolved]
  - Product use in unapproved indication [Unknown]
  - Ear infection [Unknown]
  - Therapy cessation [Unknown]

NARRATIVE: CASE EVENT DATE: 202005
